FAERS Safety Report 5472768-7 (Version None)
Quarter: 2007Q4

REPORT INFORMATION
  Report Type: 
  Country: None (occurrence: None)
  Receive Date: 20071001
  Receipt Date: 20061113
  Transmission Date: 20080405
  Serious: No
  Sender: FDA-Public Use
  Company Number: US-ASTRAZENECA-2006UW24206

PATIENT
  Age: 50 Year
  Sex: Female

DRUGS (1)
  1. ARIMIDEX [Suspect]
     Indication: BREAST CANCER FEMALE
     Route: 048
     Dates: start: 20060901

REACTIONS (7)
  - ABDOMINAL PAIN [None]
  - DEPRESSION [None]
  - FLUSHING [None]
  - HOT FLUSH [None]
  - INSOMNIA [None]
  - RESTLESS LEGS SYNDROME [None]
  - SUICIDAL IDEATION [None]
